FAERS Safety Report 22229163 (Version 1)
Quarter: 2023Q2

REPORT INFORMATION
  Report Type: Spontaneous
  Country: US (occurrence: US)
  Receive Date: 20230419
  Receipt Date: 20230419
  Transmission Date: 20230721
  Serious: No
  Sender: FDA-Public Use
  Company Number: US-ALLERGAN-2209526US

PATIENT
  Age: 72 Year
  Sex: Male

DRUGS (7)
  1. RESTASIS [Suspect]
     Active Substance: CYCLOSPORINE
     Indication: Meibomian gland dysfunction
     Dosage: 2 GTT, BID
     Route: 047
     Dates: start: 20220315, end: 20220316
  2. FLAXSEED [Concomitant]
     Active Substance: FLAX SEED
     Indication: Product used for unknown indication
  3. FISH OIL [Concomitant]
     Active Substance: FISH OIL
     Indication: Product used for unknown indication
  4. Artificial tears [Concomitant]
     Indication: Product used for unknown indication
  5. Systane gel [Concomitant]
     Indication: Product used for unknown indication
     Dosage: UNK, QHS
  6. AVAPRO [Concomitant]
     Active Substance: IRBESARTAN
     Indication: Hypertension
  7. CRESTOR [Concomitant]
     Active Substance: ROSUVASTATIN CALCIUM
     Indication: Blood cholesterol increased

REACTIONS (3)
  - Enlarged uvula [Recovering/Resolving]
  - Dysphagia [Recovering/Resolving]
  - Off label use [Unknown]

NARRATIVE: CASE EVENT DATE: 20220317
